FAERS Safety Report 12042366 (Version 15)
Quarter: 2016Q4

REPORT INFORMATION
  Report Type: Report from Study
  Country: HK (occurrence: HK)
  Receive Date: 20160208
  Receipt Date: 20161108
  Transmission Date: 20170206
  Serious: Yes (Death, Hospitalization)
  Sender: FDA-Public Use
  Company Number: HK-B.I. PHARMACEUTICALS,INC./RIDGEFIELD-2016-BI-01386BI

PATIENT
  Age: 58 Year
  Sex: Male
  Weight: 40 kg

DRUGS (13)
  1. TRAMADOL. [Concomitant]
     Active Substance: TRAMADOL
     Indication: ORAL PAIN
     Route: 048
     Dates: start: 20150205
  2. BIBW 2992 [Suspect]
     Active Substance: AFATINIB
     Route: 048
     Dates: start: 20160413, end: 20160420
  3. THYROXINE [Concomitant]
     Active Substance: LEVOTHYROXINE
     Indication: HYPOTHYROIDISM
     Route: 048
     Dates: start: 20160125
  4. BIBW 2992 [Suspect]
     Active Substance: AFATINIB
     Indication: TONGUE NEOPLASM MALIGNANT STAGE UNSPECIFIED
     Route: 048
     Dates: start: 20151229, end: 20160118
  5. BIBW 2992 [Suspect]
     Active Substance: AFATINIB
     Indication: BRONCHIOLOALVEOLAR CARCINOMA
     Route: 048
     Dates: start: 20160126, end: 20160404
  6. MAGNESIUM TRISILCATE MIXTURE [Concomitant]
     Indication: HYPOMAGNESAEMIA
     Route: 048
     Dates: start: 20150105
  7. PROMETHAZINE COMPOUND LINCTUS [Concomitant]
     Indication: COUGH
     Route: 048
     Dates: start: 20160211
  8. METOCLOPRAMIDE. [Concomitant]
     Active Substance: METOCLOPRAMIDE
     Indication: NAUSEA
     Route: 048
     Dates: start: 20150105
  9. FUCIDIN [Concomitant]
     Active Substance: FUSIDIC ACID
     Indication: PARONYCHIA
     Dosage: DAILY DOSE: 3 APPLICATION
     Route: 061
     Dates: start: 20160301
  10. AMLODIPINE BESYLATE. [Concomitant]
     Active Substance: AMLODIPINE BESYLATE
     Indication: HYPERTENSION
     Route: 048
     Dates: start: 20141219
  11. SODIUM CHLORIDE. [Concomitant]
     Active Substance: SODIUM CHLORIDE
     Indication: HYPONATRAEMIA
     Route: 048
     Dates: start: 20150105
  12. POVIDONE-IODINE. [Concomitant]
     Active Substance: POVIDONE-IODINE
     Indication: DENTAL DISORDER PROPHYLAXIS
     Route: 002
     Dates: start: 20150105
  13. BENZYDAMINE HCL [Concomitant]
     Indication: STOMATITIS
     Route: 002
     Dates: start: 20160202

REACTIONS (10)
  - Lower respiratory tract infection [Fatal]
  - Hypokalaemia [Recovered/Resolved]
  - Hypokalaemia [Recovered/Resolved]
  - Hyponatraemia [Recovered/Resolved]
  - Hypercalcaemia [Recovered/Resolved]
  - Syncope [Recovered/Resolved]
  - Lower respiratory tract infection [Recovered/Resolved]
  - Tumour haemorrhage [Recovered/Resolved]
  - Dyspnoea [Recovered/Resolved]
  - Lower respiratory tract infection [Recovered/Resolved]

NARRATIVE: CASE EVENT DATE: 20160109
